FAERS Safety Report 7954383-6 (Version None)
Quarter: 2011Q4

REPORT INFORMATION
  Report Type: 
  Country: None (occurrence: None)
  Receive Date: 20111202
  Receipt Date: 20100329
  Transmission Date: 20120403
  Serious: Yes (Hospitalization)
  Sender: FDA-Public Use
  Company Number: US-GLAXOSMITHKLINE-A0852480A

PATIENT
  Age: 54 Year
  Sex: Female
  Weight: 78.5 kg

DRUGS (5)
  1. PLAQUENIL [Concomitant]
  2. AVANDIA [Suspect]
     Indication: DIABETES MELLITUS
     Dosage: 8MG PER DAY
     Route: 048
     Dates: start: 20000201, end: 20071101
  3. COZAAR [Concomitant]
  4. AMARYL [Concomitant]
  5. LORTAB [Concomitant]

REACTIONS (7)
  - CONGESTIVE CARDIOMYOPATHY [None]
  - MITRAL VALVE INCOMPETENCE [None]
  - EMOTIONAL DISTRESS [None]
  - QUALITY OF LIFE DECREASED [None]
  - CARDIAC FAILURE CONGESTIVE [None]
  - LIFE EXPECTANCY SHORTENED [None]
  - AORTIC VALVE INCOMPETENCE [None]
